FAERS Safety Report 14450743 (Version 1)
Quarter: 2018Q1

REPORT INFORMATION
  Report Type: Spontaneous
  Country: US (occurrence: US)
  Receive Date: 20180126
  Receipt Date: 20180126
  Transmission Date: 20180509
  Serious: Yes (Life-Threatening, Other)
  Sender: FDA-Public Use
  Company Number: None

PATIENT
  Sex: Female
  Weight: 101.25 kg

DRUGS (1)
  1. TOPIRAMATE. [Suspect]
     Active Substance: TOPIRAMATE
     Indication: IRRITABILITY
     Route: 048
     Dates: start: 20170401, end: 20171012

REACTIONS (2)
  - Renal failure [None]
  - Metabolic acidosis [None]

NARRATIVE: CASE EVENT DATE: 20171012
